FAERS Safety Report 7556954-8 (Version None)
Quarter: 2011Q2

REPORT INFORMATION
  Report Type: 
  Country: None (occurrence: None)
  Receive Date: 20110620
  Receipt Date: 20110613
  Transmission Date: 20111010
  Serious: Yes (Death)
  Sender: FDA-Public Use
  Company Number: PHHY2011MX52226

PATIENT
  Sex: Female

DRUGS (1)
  1. DIOVAN HCT [Suspect]
     Indication: HYPERTENSION
     Dosage: 160 MG VALS AND 25 MG HYDR, QD

REACTIONS (5)
  - HERPES VIRUS INFECTION [None]
  - RENAL FAILURE [None]
  - INFLAMMATION [None]
  - LUNG DISORDER [None]
  - GASTRITIS [None]
